FAERS Safety Report 7318743-9 (Version None)
Quarter: 2011Q1

REPORT INFORMATION
  Report Type: 
  Country: None (occurrence: None)
  Receive Date: 20110228
  Receipt Date: 20100908
  Transmission Date: 20110831
  Serious: No
  Sender: FDA-Public Use
  Company Number: A0847032A

PATIENT
  Age: 48 Year
  Sex: Female
  Weight: 92.7 kg

DRUGS (23)
  1. XANAX [Concomitant]
  2. PROAIR HFA [Concomitant]
  3. BACLOFEN [Concomitant]
  4. IMITREX [Suspect]
     Indication: MIGRAINE
     Dosage: 6MG AS REQUIRED
     Route: 058
     Dates: start: 20060101
  5. IMITREX TABLETS [Concomitant]
  6. ZOLOFT [Concomitant]
  7. VITAMIN D [Concomitant]
  8. ZANAFLEX [Concomitant]
  9. VICODIN [Concomitant]
  10. MORPHINE [Concomitant]
  11. COMPAZINE [Concomitant]
  12. TOPAMAX [Concomitant]
  13. GSK AUTOINJECTOR [Suspect]
     Route: 065
  14. BETAFERON [Concomitant]
  15. ZOCOR [Concomitant]
  16. PROPRANOLOL [Concomitant]
  17. PREVACID [Concomitant]
  18. VITAMIN B-12 [Concomitant]
  19. NEURONTIN [Concomitant]
  20. KLONOPIN [Concomitant]
  21. ALLEGRA D 24 HOUR [Concomitant]
  22. PERCOCET [Concomitant]
  23. LIBRAX [Concomitant]

REACTIONS (6)
  - DRUG INEFFECTIVE [None]
  - INJECTION SITE PARAESTHESIA [None]
  - INJECTION SITE PAIN [None]
  - PRODUCT QUALITY ISSUE [None]
  - FEELING HOT [None]
  - PARAESTHESIA [None]
